FAERS Safety Report 9402402 (Version 2)
Quarter: 2013Q3

REPORT INFORMATION
  Report Type: Spontaneous
  Country: BR (occurrence: BR)
  Receive Date: 20130716
  Receipt Date: 20130731
  Transmission Date: 20140515
  Serious: Yes (Other)
  Sender: FDA-Public Use
  Company Number: BR-SANOFI-AVENTIS-2013SA069622

PATIENT
  Age: 9 Year
  Sex: Male
  Weight: 42 kg

DRUGS (2)
  1. LANTUS [Suspect]
     Indication: TYPE 1 DIABETES MELLITUS
     Route: 058
     Dates: start: 20130501
  2. CLIKSTAR [Concomitant]
     Indication: DEVICE THERAPY
     Dates: start: 20130501

REACTIONS (3)
  - Hyperthyroidism [Not Recovered/Not Resolved]
  - Injection site pain [Recovered/Resolved]
  - Rash macular [Not Recovered/Not Resolved]
